FAERS Safety Report 8806129 (Version 1)
Quarter: 2012Q4

REPORT INFORMATION
  Report Type: 
  Country: DE (occurrence: DE)
  Receive Date: 20120925
  Receipt Date: 20120925
  Transmission Date: 20130627
  Serious: Yes (Life-Threatening, Hospitalization, Other)
  Sender: FDA-Public Use
  Company Number: DE-009507513-1209DEU009294

PATIENT
  Age: 34 Year
  Sex: Male
  Weight: 100 kg

DRUGS (3)
  1. SINGULAIR 10 MG FILMTABLETTEN [Suspect]
     Indication: ASTHMA
     Dosage: 10 mg, qd
     Route: 048
     Dates: start: 201202, end: 201204
  2. PAROXETINE [Concomitant]
     Indication: ANXIETY DISORDER
     Dosage: 20 mg, UNK
     Route: 048
  3. VIANI [Concomitant]
     Dosage: use for several years
     Route: 055

REACTIONS (1)
  - Allergic granulomatous angiitis [Not Recovered/Not Resolved]
